FAERS Safety Report 6753679-3 (Version None)
Quarter: 2010Q2

REPORT INFORMATION
  Report Type: 
  Country: None (occurrence: None)
  Receive Date: 20100601
  Receipt Date: 20100519
  Transmission Date: 20101027
  Serious: Yes (Congenital Anomaly)
  Sender: FDA-Public Use
  Company Number: SPI200800339

PATIENT
  Sex: Male

DRUGS (2)
  1. AMITIZA [Suspect]
     Dosage: 24 MCG, TRANSPLACENTAL
     Route: 064
     Dates: start: 20080101, end: 20080101
  2. LEXAPRO [Concomitant]

REACTIONS (3)
  - LEG AMPUTATION [None]
  - LIMB MALFORMATION [None]
  - MATERNAL DRUGS AFFECTING FOETUS [None]
